FAERS Safety Report 25749698 (Version 1)
Quarter: 2025Q3

REPORT INFORMATION
  Report Type: Spontaneous
  Country: CN (occurrence: CN)
  Receive Date: 20250902
  Receipt Date: 20250902
  Transmission Date: 20251020
  Serious: Yes (Hospitalization, Other)
  Sender: NOVITIUM PHARMA
  Company Number: CN-NOVITIUMPHARMA-2025CNNVP02201

PATIENT
  Age: 59 Year
  Sex: Male

DRUGS (7)
  1. PREDNISONE [Suspect]
     Active Substance: PREDNISONE
     Indication: Iridocyclitis
     Route: 061
  2. PREDNISONE [Suspect]
     Active Substance: PREDNISONE
     Route: 048
  3. GANCICLOVIR [Concomitant]
     Active Substance: GANCICLOVIR
     Route: 061
  4. TACROLIMUS [Concomitant]
     Active Substance: TACROLIMUS
  5. PREDNISOLONE ACETATE [Concomitant]
     Active Substance: PREDNISOLONE ACETATE
     Dosage: SUSPENSION
  6. PREDNISOLONE ACETATE [Concomitant]
     Active Substance: PREDNISOLONE ACETATE
     Dosage: SUSPENSION
  7. CYCLOSPORINE [Concomitant]
     Active Substance: CYCLOSPORINE
     Indication: Iridocyclitis

REACTIONS (1)
  - Post transplant lymphoproliferative disorder [Recovered/Resolved]
